FAERS Safety Report 5614595-3 (Version None)
Quarter: 2008Q1

REPORT INFORMATION
  Report Type: 
  Country: None (occurrence: None)
  Receive Date: 20080205
  Receipt Date: 20080129
  Transmission Date: 20080703
  Serious: Yes (Death)
  Sender: FDA-Public Use
  Company Number: US-GILEAD-2008-0015122

PATIENT
  Sex: Female
  Weight: 66.738 kg

DRUGS (12)
  1. LETAIRIS [Suspect]
     Indication: PULMONARY HYPERTENSION
     Route: 048
     Dates: start: 20070910, end: 20071229
  2. REVATIO [Concomitant]
     Indication: PULMONARY HYPERTENSION
     Dates: end: 20071229
  3. PROSTACYCLIN [Concomitant]
     Indication: PULMONARY HYPERTENSION
     Route: 042
     Dates: end: 20071229
  4. LASIX [Concomitant]
     Indication: PULMONARY HYPERTENSION
     Route: 048
     Dates: end: 20071229
  5. COUMADIN [Concomitant]
     Indication: ANTICOAGULATION DRUG LEVEL
     Route: 048
     Dates: end: 20071229
  6. POTASSIUM CHLORIDE [Concomitant]
     Indication: SUPPLEMENTATION THERAPY
     Route: 048
     Dates: end: 20071229
  7. LIPITOR [Concomitant]
     Indication: HYPERCHOLESTEROLAEMIA
     Route: 048
     Dates: end: 20071229
  8. LANTUS [Concomitant]
     Indication: TYPE 1 DIABETES MELLITUS
     Dates: end: 20071229
  9. NEURONTIN [Concomitant]
     Indication: NEUROPATHY PERIPHERAL
     Route: 048
     Dates: end: 20071229
  10. ZOLOFT [Concomitant]
     Indication: DEPRESSION
     Route: 048
     Dates: end: 20071229
  11. ATIVAN [Concomitant]
     Indication: ANXIETY DISORDER
     Route: 048
     Dates: end: 20071229
  12. AMBIEN [Concomitant]
     Indication: INSOMNIA
     Route: 048
     Dates: end: 20071229

REACTIONS (1)
  - CARDIAC ARREST [None]
